FAERS Safety Report 5169252-7 (Version None)
Quarter: 2006Q4

REPORT INFORMATION
  Report Type: 
  Country: None (occurrence: None)
  Receive Date: 20061211
  Receipt Date: 20061129
  Transmission Date: 20070319
  Serious: Yes (Hospitalization)
  Sender: FDA-Public Use
  Company Number: US-SANOFI-SYNTHELABO-A03200607162

PATIENT
  Sex: Female

DRUGS (6)
  1. CYMBALTA [Concomitant]
     Dosage: UNK
     Route: 048
  2. GLUCOSAMINE [Concomitant]
     Dosage: UNK
     Route: 048
  3. CALCIUM [Concomitant]
     Dosage: UNK
     Route: 048
  4. VITAMINS [Concomitant]
     Dosage: UNK
     Route: 048
  5. BENICAR [Concomitant]
     Dosage: UNK
     Route: 048
  6. AMBIEN [Suspect]
     Indication: INSOMNIA
     Route: 048
     Dates: start: 20060506, end: 20060506

REACTIONS (6)
  - AMNESIA [None]
  - ARTHRALGIA [None]
  - FALL [None]
  - MENISCUS LESION [None]
  - PATELLA FRACTURE [None]
  - SLEEP WALKING [None]
